FAERS Safety Report 5151019-7 (Version None)
Quarter: 2006Q4

REPORT INFORMATION
  Report Type: 
  Country: None (occurrence: None)
  Receive Date: 20061113
  Receipt Date: 20061113
  Transmission Date: 20070319
  Serious: No
  Sender: FDA-Public Use
  Company Number: None

PATIENT
  Age: 50 Year
  Sex: Male
  Weight: 79.3795 kg

DRUGS (1)
  1. CITALOPRAM HYDROBROMIDE [Suspect]
     Indication: DEPRESSION
     Dosage: TAKE 1 TABLET DAILY
     Route: 048
     Dates: start: 20060914, end: 20061010

REACTIONS (3)
  - DEPRESSION [None]
  - INCONTINENCE [None]
  - SINUS DISORDER [None]
